FAERS Safety Report 5156908-5 (Version None)
Quarter: 2006Q4

REPORT INFORMATION
  Report Type: 
  Country: None (occurrence: None)
  Receive Date: 20060918
  Receipt Date: 20060630
  Transmission Date: 20070319
  Serious: Yes (Other)
  Sender: FDA-Public Use
  Company Number: US-JNJFOC-20060700900

PATIENT
  Age: 35 Year
  Sex: Female
  Weight: 72.5755 kg

DRUGS (1)
  1. TOPAMAX [Suspect]
     Indication: MIGRAINE
     Dosage: 25 MG 2 IN 1 DAY
     Dates: start: 20060601, end: 20060627

REACTIONS (3)
  - MYOPIA [None]
  - VISION BLURRED [None]
  - VISUAL DISTURBANCE [None]
